FAERS Safety Report 8778888 (Version 1)
Quarter: 2012Q4

REPORT INFORMATION
  Report Type: 
  Country: AR (occurrence: AR)
  Receive Date: 20120912
  Receipt Date: 20120912
  Transmission Date: 20130627
  Serious: Yes (Other)
  Sender: FDA-Public Use
  Company Number: PHHY2012AR078604

PATIENT
  Sex: Female

DRUGS (1)
  1. DIOVAN [Suspect]
     Indication: HYPERTENSION
     Dosage: 160 mg, daily
     Dates: start: 2008, end: 2009

REACTIONS (2)
  - Lung neoplasm malignant [Recovered/Resolved]
  - Oxygen consumption increased [Recovered/Resolved]
